FAERS Safety Report 9320912 (Version 2)
Quarter: 2013Q2

REPORT INFORMATION
  Report Type: Spontaneous
  Country: BR (occurrence: BR)
  Receive Date: 20130531
  Receipt Date: 20130620
  Transmission Date: 20140414
  Serious: Yes (Hospitalization, Other)
  Sender: FDA-Public Use
  Company Number: PHHY2013BR054596

PATIENT
  Sex: Male

DRUGS (2)
  1. TEGRETOL [Suspect]
     Indication: CONVULSION
     Dosage: 6 ML, BID
     Route: 048
  2. CARBAMAZEPINE [Suspect]
     Dosage: UNK UKN, UNK

REACTIONS (2)
  - Cerebrovascular accident [Unknown]
  - Syncope [Unknown]
